FAERS Safety Report 9136258 (Version 1)
Quarter: 2013Q1

REPORT INFORMATION
  Report Type: Spontaneous
  Country: IT (occurrence: IT)
  Receive Date: 20130304
  Receipt Date: 20130304
  Transmission Date: 20140127
  Serious: Yes (Hospitalization)
  Sender: FDA-Public Use
  Company Number: IT-GLAXOSMITHKLINE-B0871012A

PATIENT
  Age: 91 Year
  Sex: Female

DRUGS (4)
  1. SEREUPIN [Suspect]
     Indication: PSYCHOMOTOR HYPERACTIVITY
     Dosage: 20MG PER DAY
     Route: 048
     Dates: start: 20110315, end: 20110824
  2. XANAX [Suspect]
     Indication: PSYCHOMOTOR HYPERACTIVITY
     Dosage: .25MG PER DAY
     Route: 048
     Dates: start: 20110820, end: 20110824
  3. DIAZEPAM [Suspect]
     Indication: PSYCHOMOTOR HYPERACTIVITY
     Dosage: 10DROP PER DAY
     Route: 048
     Dates: start: 20110610, end: 20110824
  4. TIMOPTOL [Concomitant]

REACTIONS (1)
  - Injury [Recovering/Resolving]
